FAERS Safety Report 13364764 (Version 1)
Quarter: 2017Q1

REPORT INFORMATION
  Report Type: Spontaneous
  Country: US (occurrence: US)
  Receive Date: 20170323
  Receipt Date: 20170323
  Transmission Date: 20170429
  Serious: No
  Sender: FDA-Public Use
  Company Number: US-ROCHE-1334926

PATIENT
  Sex: Male

DRUGS (5)
  1. SYMBICORT [Concomitant]
     Active Substance: BUDESONIDE\FORMOTEROL FUMARATE DIHYDRATE
  2. PROAIR HFA [Concomitant]
     Active Substance: ALBUTEROL SULFATE
  3. XOLAIR [Suspect]
     Active Substance: OMALIZUMAB
     Indication: ASTHMA
     Route: 058
  4. SINGULAIR [Concomitant]
     Active Substance: MONTELUKAST SODIUM
  5. TUDORZA PRESSAIR [Concomitant]
     Active Substance: ACLIDINIUM BROMIDE

REACTIONS (1)
  - Upper respiratory tract infection [Unknown]

NARRATIVE: CASE EVENT DATE: 2013
